FAERS Safety Report 8381936-6 (Version None)
Quarter: 2012Q2

REPORT INFORMATION
  Report Type: 
  Country: None (occurrence: None)
  Receive Date: 20120522
  Receipt Date: 20120522
  Transmission Date: 20120825
  Serious: Yes (Other)
  Sender: FDA-Public Use
  Company Number: None

PATIENT
  Age: 47 Year
  Sex: Male
  Weight: 88 kg

DRUGS (6)
  1. NS [Concomitant]
  2. ASPIRIN [Concomitant]
  3. CLEOCIN PHOSPHATE [Suspect]
     Dosage: 600MG Q8H IV
     Route: 042
     Dates: start: 20120504, end: 20120514
  4. DOCUSATE SODIUM [Concomitant]
  5. PROPOFOL [Concomitant]
  6. DUONEB [Concomitant]

REACTIONS (3)
  - RASH ERYTHEMATOUS [None]
  - DRUG EFFECT DECREASED [None]
  - RASH GENERALISED [None]
